FAERS Safety Report 8875610 (Version 2)
Quarter: 2012Q4

REPORT INFORMATION
  Report Type: 
  Country: SE (occurrence: SE)
  Receive Date: 20121023
  Receipt Date: 20121101
  Transmission Date: 20130627
  Serious: No
  Sender: FDA-Public Use
  Company Number: PHHY2012SE094152

PATIENT

DRUGS (2)
  1. GILENYA [Suspect]
     Indication: MULTIPLE SCLEROSIS
     Dosage: 0.5 mg, UNK
     Route: 048
  2. KAVEPENIN [Concomitant]
     Dosage: 1 g, 2X3X2 per day then 1X3X7

REACTIONS (1)
  - Pharyngitis [Recovering/Resolving]
